FAERS Safety Report 8174677-1 (Version None)
Quarter: 2012Q1

REPORT INFORMATION
  Report Type: 
  Country: None (occurrence: None)
  Receive Date: 20120229
  Receipt Date: 20120223
  Transmission Date: 20120608
  Serious: Yes (Hospitalization)
  Sender: FDA-Public Use
  Company Number: US-GLAXOSMITHKLINE-A0886518A

PATIENT
  Sex: Male
  Weight: 99.1 kg

DRUGS (6)
  1. LISINOPRIL [Concomitant]
  2. CELEBREX [Concomitant]
     Dates: start: 20020101, end: 20050906
  3. METOPROLOL SUCCINATE [Concomitant]
  4. GLIPIZIDE [Concomitant]
  5. GLUCOTROL [Concomitant]
  6. AVANDIA [Suspect]
     Indication: DIABETES MELLITUS
     Dosage: 8MG PER DAY
     Route: 048
     Dates: start: 20020101, end: 20090914

REACTIONS (2)
  - MYOCARDIAL INFARCTION [None]
  - CARDIOVASCULAR DISORDER [None]
